FAERS Safety Report 8216260-5 (Version None)
Quarter: 2012Q1

REPORT INFORMATION
  Report Type: 
  Country: None (occurrence: None)
  Receive Date: 20120316
  Receipt Date: 20120312
  Transmission Date: 20120608
  Serious: Yes (Other)
  Sender: FDA-Public Use
  Company Number: PHEH2012US005668

PATIENT
  Sex: Female

DRUGS (3)
  1. FEMARA [Suspect]
  2. VITAMIN D [Concomitant]
  3. MOTRIN [Interacting]

REACTIONS (10)
  - ASTHMA [None]
  - HYPOAESTHESIA [None]
  - ARTHRALGIA [None]
  - PARAESTHESIA [None]
  - EYE SWELLING [None]
  - ASTHENIA [None]
  - OEDEMA PERIPHERAL [None]
  - POLYARTHRITIS [None]
  - EPISTAXIS [None]
  - HEADACHE [None]
